FAERS Safety Report 9358450 (Version 2)
Quarter: 2013Q3

REPORT INFORMATION
  Report Type: Report from Study
  Country: CA (occurrence: CA)
  Receive Date: 20130620
  Receipt Date: 20130712
  Transmission Date: 20140515
  Serious: Yes (Death)
  Sender: FDA-Public Use
  Company Number: PHHY2013CA062956

PATIENT
  Age: 80 Year
  Sex: Female

DRUGS (4)
  1. ACLASTA [Suspect]
     Indication: OSTEOPOROSIS
     Dosage: UNK
     Route: 042
     Dates: start: 20090625
  2. ACLASTA [Suspect]
     Dosage: UNK
     Route: 042
     Dates: start: 20100629
  3. ACLASTA [Suspect]
     Dosage: UNK
     Route: 042
     Dates: start: 20110610
  4. ACLASTA [Suspect]
     Dosage: UNK
     Route: 042
     Dates: start: 20120412

REACTIONS (2)
  - Death [Fatal]
  - Inappropriate schedule of drug administration [Unknown]
